FAERS Safety Report 14148087 (Version 2)
Quarter: 2017Q4

REPORT INFORMATION
  Report Type: Spontaneous
  Country: US (occurrence: US)
  Receive Date: 20171101
  Receipt Date: 20171106
  Transmission Date: 20180321
  Serious: Yes (Hospitalization, Other)
  Sender: FDA-Public Use
  Company Number: US-PFIZER INC-2017469924

PATIENT
  Age: 76 Year
  Sex: Male
  Weight: 88.89 kg

DRUGS (1)
  1. TOVIAZ [Suspect]
     Active Substance: FESOTERODINE FUMARATE
     Dosage: 8 MG (ONE TABLET) , UNK
     Dates: start: 20171027

REACTIONS (5)
  - Dry mouth [Unknown]
  - Discomfort [Unknown]
  - Urinary retention [Unknown]
  - Constipation [Unknown]
  - Micturition urgency [Unknown]

NARRATIVE: CASE EVENT DATE: 20171027
